FAERS Safety Report 18327734 (Version 1)
Quarter: 2020Q3

REPORT INFORMATION
  Report Type: Spontaneous
  Country: US (occurrence: US)
  Receive Date: 20200930
  Receipt Date: 20200930
  Transmission Date: 20201103
  Serious: No
  Sender: FDA-Public Use
  Company Number: US-STRIDES ARCOLAB LIMITED-2020SP010967

PATIENT
  Age: 3 Decade
  Sex: Female

DRUGS (13)
  1. BUPIVACAINE. [Suspect]
     Active Substance: BUPIVACAINE
     Indication: ANAESTHESIA PROCEDURE
     Dosage: 1 MILLILITER
     Route: 037
  2. BUPIVACAINE. [Suspect]
     Active Substance: BUPIVACAINE
     Dosage: 1 MILLILITER ADMINISTERED IN DIVIDED DOSES
     Route: 037
  3. BUPIVACAINE. [Suspect]
     Active Substance: BUPIVACAINE
     Dosage: 0.5 MILLILITER
     Route: 037
  4. LIDOCAINE. [Suspect]
     Active Substance: LIDOCAINE
     Dosage: 3 MILLILITER
     Route: 058
  5. FENTANYL. [Suspect]
     Active Substance: FENTANYL
     Dosage: 60 MICROGRAM
     Route: 042
  6. FENTANYL. [Suspect]
     Active Substance: FENTANYL
     Indication: ANAESTHESIA PROCEDURE
     Dosage: 20 MICROGRAM
     Route: 037
  7. FENTANYL. [Suspect]
     Active Substance: FENTANYL
     Dosage: 20 MICROGRAM
     Route: 037
  8. BUPIVACAINE. [Suspect]
     Active Substance: BUPIVACAINE
     Dosage: 2 MILLILITER IN 0.5 MILLILITER INCREMENTS, UNK
     Route: 037
  9. MORPHINE [Suspect]
     Active Substance: MORPHINE
     Indication: ANAESTHESIA PROCEDURE
     Dosage: 100 MICROGRAM
     Route: 037
  10. LIDOCAINE. [Suspect]
     Active Substance: LIDOCAINE
     Indication: ANAESTHESIA PROCEDURE
     Dosage: 2 MILLILITER AT THE L4?L5 LEVEL
     Route: 058
  11. MIDAZOLAM. [Suspect]
     Active Substance: MIDAZOLAM
     Dosage: 1 MILLIGRAM
     Route: 042
  12. PHENYLEPHRINE [Suspect]
     Active Substance: PHENYLEPHRINE HYDROCHLORIDE
     Indication: BLOOD PRESSURE MANAGEMENT
     Dosage: UNK, 0.3 ?G/KG/MIN
     Route: 042
  13. MIDAZOLAM. [Suspect]
     Active Substance: MIDAZOLAM
     Indication: ANXIETY
     Dosage: 1 MILLIGRAM
     Route: 042

REACTIONS (1)
  - Maternal exposure during pregnancy [Unknown]
